FAERS Safety Report 10398907 (Version 1)
Quarter: 2014Q1

REPORT INFORMATION
  Report Type: Spontaneous
  Country: US (occurrence: None)
  Receive Date: 20130815
  Receipt Date: 20130815
  Transmission Date: 20141002
  Serious: Yes (Other)
  Sender: FDA-Public Use
  Company Number: ADR-2013-00141

PATIENT
  Sex: Female

DRUGS (4)
  1. BACLOFEN INTRATHECAL [Suspect]
     Indication: NEUROPATHY PERIPHERAL
  2. DILAUDID (HYDROMORPHONE) [Concomitant]
  3. BUPIVACAINE [Concomitant]
  4. CLONIDINE INTRATHECAL [Concomitant]

REACTIONS (4)
  - Paraesthesia [None]
  - No therapeutic response [None]
  - Fall [None]
  - Muscle spasms [None]
